FAERS Safety Report 5039911-5 (Version None)
Quarter: 2006Q2

REPORT INFORMATION
  Report Type: 
  Country: None (occurrence: None)
  Receive Date: 20060601
  Receipt Date: 20060223
  Transmission Date: 20061013
  Serious: No
  Sender: FDA-Public Use
  Company Number: 2005PV004402

PATIENT
  Age: 74 Year
  Sex: Male
  Weight: 125.6464 kg

DRUGS (3)
  1. BYETTA [Suspect]
     Indication: DIABETES MELLITUS NON-INSULIN-DEPENDENT
     Dosage: SEE IMAGE
     Route: 058
     Dates: start: 20051028, end: 20051101
  2. BYETTA [Suspect]
     Indication: DIABETES MELLITUS NON-INSULIN-DEPENDENT
     Dosage: SEE IMAGE
     Route: 058
     Dates: start: 20051101
  3. PRAVACHOL [Concomitant]

REACTIONS (5)
  - ANOREXIA [None]
  - CONSTIPATION [None]
  - DRUG INEFFECTIVE [None]
  - INCREASED APPETITE [None]
  - WEIGHT DECREASED [None]
